FAERS Safety Report 8047653-7 (Version None)
Quarter: 2012Q1

REPORT INFORMATION
  Report Type: 
  Country: None (occurrence: None)
  Receive Date: 20120116
  Receipt Date: 20120113
  Transmission Date: 20120608
  Serious: No
  Sender: FDA-Public Use
  Company Number: US-BAYER-2012-004500

PATIENT
  Sex: Female
  Weight: 57.143 kg

DRUGS (1)
  1. ULTRAVIST 150 [Suspect]
     Indication: COMPUTERISED TOMOGRAM HEAD
     Dosage: UNK
     Route: 042
     Dates: start: 20120113

REACTIONS (1)
  - URTICARIA [None]
